FAERS Safety Report 14351899 (Version 22)
Quarter: 2020Q1

REPORT INFORMATION
  Report Type: Spontaneous
  Country: CA (occurrence: CA)
  Receive Date: 20180104
  Receipt Date: 20200325
  Transmission Date: 20200409
  Serious: Yes (Other)
  Sender: FDA-Public Use
  Company Number: CA-CELLTRION INC.-2017CA011726

PATIENT

DRUGS (20)
  1. INFLECTRA [Suspect]
     Active Substance: INFLIXIMAB-DYYB
     Dosage: 310 MG (EVERY 4 WEEKS)
     Route: 042
     Dates: start: 20171107
  2. INFLECTRA [Suspect]
     Active Substance: INFLIXIMAB-DYYB
     Dosage: 310 MG (EVERY 4 WEEKS)
     Route: 042
     Dates: start: 20180207
  3. IMURAN [Concomitant]
     Active Substance: AZATHIOPRINE
     Dosage: 3 TABLETS (DF), DAILY
     Route: 048
     Dates: start: 201608, end: 201806
  4. INFLECTRA [Suspect]
     Active Substance: INFLIXIMAB-DYYB
     Indication: CROHN^S DISEASE
     Dosage: 313 MG (EVERY 0, 2, 6 WEEKS, THEN EVERY 8 WEEKS)
     Route: 042
     Dates: start: 20170130, end: 20170831
  5. VITAMIN C [Concomitant]
     Active Substance: ASCORBIC ACID
     Dosage: UNK
     Route: 065
  6. VITAMIN B12 [VITAMIN B12 NOS] [Concomitant]
     Active Substance: CYANOCOBALAMIN
     Dosage: 1 TAB OD
     Route: 065
     Dates: start: 201808
  7. INFLECTRA [Suspect]
     Active Substance: INFLIXIMAB-DYYB
     Dosage: 310 MG (EVERY 4 WEEKS)
     Route: 042
     Dates: start: 20171010
  8. INFLECTRA [Suspect]
     Active Substance: INFLIXIMAB-DYYB
     Dosage: 5 MG/KG (EVERY 4 WEEKS)
     Route: 042
     Dates: start: 20190522
  9. INFLECTRA [Suspect]
     Active Substance: INFLIXIMAB-DYYB
     Dosage: 310 MG (EVERY 4 WEEKS)
     Route: 042
     Dates: start: 20171205
  10. INFLECTRA [Suspect]
     Active Substance: INFLIXIMAB-DYYB
     Dosage: 310 MG (EVERY 4 WEEKS)
     Route: 042
  11. INFLECTRA [Suspect]
     Active Substance: INFLIXIMAB-DYYB
     Dosage: 5 MG/KG (EVERY 4 WEEKS)
     Route: 042
     Dates: start: 20190326
  12. LOPERAMIDE TEVA [Concomitant]
     Active Substance: LOPERAMIDE
     Dosage: 2 MG, 1X/DAY, AS NEEDED
     Route: 065
  13. INFLECTRA [Suspect]
     Active Substance: INFLIXIMAB-DYYB
     Dosage: 310 MG (EVERY 4 WEEKS)
     Route: 042
     Dates: start: 20180410, end: 20180704
  14. INFLECTRA [Suspect]
     Active Substance: INFLIXIMAB-DYYB
     Dosage: 5 MG/KG (EVERY 4 WEEKS)
     Route: 042
     Dates: start: 20190226
  15. VITAMIN D3 [Concomitant]
     Active Substance: CHOLECALCIFEROL
     Dosage: 1 DF, 1X/DAY (OD)
     Route: 065
     Dates: start: 201808
  16. LOPERAMIDE TEVA [Concomitant]
     Active Substance: LOPERAMIDE
     Indication: COLOSTOMY
     Dosage: 2 MG, AS NEEDED (PRN)
     Dates: start: 201808
  17. INFLECTRA [Suspect]
     Active Substance: INFLIXIMAB-DYYB
     Dosage: 310 MG (EVERY 4 WEEKS)
     Route: 042
     Dates: start: 20180312
  18. INFLECTRA [Suspect]
     Active Substance: INFLIXIMAB-DYYB
     Dosage: 5 MG/KG 35 WEEKS AND 5 DAYS AFTER LAST INFUSION
     Route: 042
     Dates: start: 20200127
  19. LOPERAMIDE TEVA [Concomitant]
     Active Substance: LOPERAMIDE
     Dosage: 5-6 TABS OD
  20. INFLECTRA [Suspect]
     Active Substance: INFLIXIMAB-DYYB
     Dosage: 5 MG/KG (EVERY 4 WEEKS)
     Route: 042
     Dates: start: 20200227, end: 20200227

REACTIONS (23)
  - Intestinal perforation [Unknown]
  - Blood pressure fluctuation [Unknown]
  - Nausea [Unknown]
  - Therapeutic product effect incomplete [Not Recovered/Not Resolved]
  - Fall [Unknown]
  - Drug level decreased [Unknown]
  - Accident [Unknown]
  - Abscess [Recovered/Resolved]
  - Dyspnoea [Unknown]
  - Flushing [Recovered/Resolved]
  - Dehydration [Unknown]
  - Intestinal obstruction [Unknown]
  - Condition aggravated [Not Recovered/Not Resolved]
  - Joint dislocation [Not Recovered/Not Resolved]
  - Cyanosis [Unknown]
  - Off label use [Unknown]
  - Chest pain [Unknown]
  - Swelling face [Unknown]
  - Intestinal mass [Unknown]
  - Blood potassium decreased [Unknown]
  - Vomiting [Unknown]
  - Intentional product use issue [Unknown]
  - Inappropriate schedule of product administration [Unknown]

NARRATIVE: CASE EVENT DATE: 20170831
